FAERS Safety Report 8583049-7 (Version None)
Quarter: 2012Q3

REPORT INFORMATION
  Report Type: 
  Country: None (occurrence: None)
  Receive Date: 20120809
  Receipt Date: 20120802
  Transmission Date: 20120928
  Serious: Yes (Other)
  Sender: FDA-Public Use
  Company Number: DE-US-EMD SERONO, INC.-7141045

PATIENT
  Sex: Male

DRUGS (2)
  1. REBIF [Suspect]
     Indication: MULTIPLE SCLEROSIS
     Route: 058
     Dates: start: 20100514
  2. REBIF [Suspect]
     Dosage: STARTER KIT
     Route: 058
     Dates: start: 20090826, end: 20100511

REACTIONS (1)
  - INJECTION SITE NECROSIS [None]
